FAERS Safety Report 9145316 (Version 1)
Quarter: 2013Q1

REPORT INFORMATION
  Report Type: Spontaneous
  Country: US (occurrence: None)
  Receive Date: 20130226
  Receipt Date: 20130226
  Transmission Date: 20140127
  Serious: Yes (Other)
  Sender: FDA-Public Use
  Company Number: None

PATIENT
  Sex: Female
  Weight: 88 kg

DRUGS (3)
  1. VALACYCLOVIR 1 GRAM [Suspect]
     Indication: GENITAL HERPES
     Route: 048
     Dates: start: 201202
  2. VALACYCLOVIR 1 GRAM [Suspect]
     Indication: GENITAL HERPES
     Route: 048
     Dates: start: 201202
  3. LO SEASONIQUE [Concomitant]

REACTIONS (4)
  - Herpes simplex [None]
  - Condition aggravated [None]
  - Headache [None]
  - Nausea [None]
